FAERS Safety Report 19472852 (Version 1)
Quarter: 2021Q2

REPORT INFORMATION
  Report Type: Spontaneous
  Country: US (occurrence: US)
  Receive Date: 20210629
  Receipt Date: 20210629
  Transmission Date: 20210717
  Serious: Yes (Other)
  Sender: FDA-Public Use
  Company Number: US-ORPHANEU-2020001150

PATIENT

DRUGS (8)
  1. SIGNIFOR [PASIREOTIDE EMBONATE] [Suspect]
     Active Substance: PASIREOTIDE PAMOATE
     Indication: NELSON^S SYNDROME
     Dosage: 0.6 MG BID
     Route: 058
     Dates: start: 20160906, end: 20201223
  2. ZOCOR [Concomitant]
     Active Substance: SIMVASTATIN
     Indication: PRODUCT USED FOR UNKNOWN INDICATION
     Dosage: UNK
  3. OSCAL [Concomitant]
     Active Substance: CALCIUM CARBONATE
     Indication: PRODUCT USED FOR UNKNOWN INDICATION
     Dosage: UNK
  4. ASA [Concomitant]
     Active Substance: ASPIRIN
     Indication: PRODUCT USED FOR UNKNOWN INDICATION
     Dosage: UNK
  5. VITAMIN B12 [Concomitant]
     Active Substance: CYANOCOBALAMIN
     Indication: PRODUCT USED FOR UNKNOWN INDICATION
     Dosage: UNK
  6. SIGNIFOR [PASIREOTIDE EMBONATE] [Suspect]
     Active Substance: PASIREOTIDE PAMOATE
     Indication: HYPERPARATHYROIDISM SECONDARY
     Dosage: 0.6 MILLIGRAM,  DAILY ALTERAING WITH BID
     Route: 058
     Dates: start: 20160608, end: 20160715
  7. HYDROCORTISONE. [Concomitant]
     Active Substance: HYDROCORTISONE
     Indication: ADRENALECTOMY
     Dosage: 15 MG 8 AM, 5 MILLIGRAM1 PM AND 5 MILLLIGRAM 3?4 PM
     Dates: start: 20070713
  8. FLORINEF ACETATE [Concomitant]
     Active Substance: FLUDROCORTISONE ACETATE
     Indication: ADRENALECTOMY
     Dosage: 0.1 MG/DAY
     Dates: start: 20070713

REACTIONS (8)
  - Weight decreased [Unknown]
  - Decreased appetite [Unknown]
  - Off label use [Recovered/Resolved]
  - Nausea [Not Recovered/Not Resolved]
  - Dizziness [Unknown]
  - Product use issue [Recovered/Resolved]
  - Diabetes mellitus [Unknown]
  - Fatigue [Not Recovered/Not Resolved]

NARRATIVE: CASE EVENT DATE: 20160616
